FAERS Safety Report 19269542 (Version 3)
Quarter: 2021Q2

REPORT INFORMATION
  Report Type: Spontaneous
  Country: US (occurrence: US)
  Receive Date: 20210518
  Receipt Date: 20210628
  Transmission Date: 20210717
  Serious: Yes (Other)
  Sender: FDA-Public Use
  Company Number: US-PFIZER INC-2021503777

PATIENT
  Age: 58 Year
  Sex: Female
  Weight: 73.5 kg

DRUGS (1)
  1. GENOTROPIN [Suspect]
     Active Substance: SOMATROPIN
     Dosage: 1 MG, DAILY (6 DAYS/WEEK)

REACTIONS (2)
  - Suicidal ideation [Unknown]
  - Product storage error [Unknown]
